FAERS Safety Report 18948891 (Version 2)
Quarter: 2021Q1

REPORT INFORMATION
  Report Type: Spontaneous
  Country: BE (occurrence: BE)
  Receive Date: 20210227
  Receipt Date: 20210319
  Transmission Date: 20210420
  Serious: Yes (Disabling)
  Sender: FDA-Public Use
  Company Number: NVSC2021BE039859

PATIENT
  Age: 59 Year
  Sex: Female

DRUGS (5)
  1. MOXIFLOXACIN SANDOZ [Suspect]
     Active Substance: MOXIFLOXACIN
     Indication: PRODUCT USED FOR UNKNOWN INDICATION
     Dosage: 1 DF, QD (1CO /J TERMINER LA BOITE)
     Route: 048
     Dates: start: 20200106
  2. DEXAMETHASONE. [Concomitant]
     Active Substance: DEXAMETHASONE
     Indication: PRODUCT USED FOR UNKNOWN INDICATION
     Dosage: 1 DF, QD (1 GELULE TEST DE DEXAMETHASONE 1MG 1J)
     Route: 065
  3. BELLOZAL [Concomitant]
     Active Substance: BILASTINE
     Indication: PRODUCT USED FOR UNKNOWN INDICATION
     Dosage: 1 DF,QD (LE SOIR)
     Route: 065
  4. MEDROL [Suspect]
     Active Substance: METHYLPREDNISOLONE
     Indication: PRODUCT USED FOR UNKNOWN INDICATION
     Dosage: 1 DF, QD (LE MATIN PENDANT 6J)
     Route: 065
  5. L?THYROXINE [Concomitant]
     Active Substance: LEVOTHYROXINE
     Indication: PRODUCT USED FOR UNKNOWN INDICATION
     Dosage: 1 DF, QD (LE MATIN A JEUN)
     Route: 065

REACTIONS (9)
  - Plantar fasciitis [Recovered/Resolved with Sequelae]
  - Epicondylitis [Recovered/Resolved with Sequelae]
  - Plantar fasciitis [Recovered/Resolved with Sequelae]
  - Thyroid disorder [Recovered/Resolved with Sequelae]
  - Vaginal infection [Recovered/Resolved with Sequelae]
  - Epicondylitis [Recovered/Resolved with Sequelae]
  - Epicondylitis [Recovered/Resolved with Sequelae]
  - Pain in extremity [Recovered/Resolved with Sequelae]
  - Arthralgia [Recovered/Resolved with Sequelae]

NARRATIVE: CASE EVENT DATE: 202003
